FAERS Safety Report 24238904 (Version 2)
Quarter: 2024Q3

REPORT INFORMATION
  Report Type: Report from Study
  Country: DE (occurrence: DE)
  Receive Date: 20240822
  Receipt Date: 20240906
  Transmission Date: 20241017
  Serious: Yes (Death)
  Sender: TEVA
  Company Number: DE-TEVA-VS-3234237

PATIENT
  Age: 17 Year
  Sex: Male

DRUGS (4)
  1. RANITIDINE [Suspect]
     Active Substance: RANITIDINE
     Indication: Suicide attempt
     Route: 065
  2. TRAMADOL [Suspect]
     Active Substance: TRAMADOL\TRAMADOL HYDROCHLORIDE
     Indication: Suicide attempt
     Route: 065
  3. LOPERAMIDE [Suspect]
     Active Substance: LOPERAMIDE
     Indication: Suicide attempt
     Route: 065
  4. DICLOFENAC [Suspect]
     Active Substance: DICLOFENAC
     Indication: Suicide attempt
     Route: 065

REACTIONS (3)
  - Toxicity to various agents [Fatal]
  - Completed suicide [Fatal]
  - Wrong patient received product [Fatal]
